FAERS Safety Report 5512782-6 (Version None)
Quarter: 2007Q4

REPORT INFORMATION
  Report Type: 
  Country: None (occurrence: None)
  Receive Date: 20071112
  Receipt Date: 20071105
  Transmission Date: 20080405
  Serious: Yes (Death, Hospitalization)
  Sender: FDA-Public Use
  Company Number: FR-AVENTIS-200713476FR

PATIENT
  Age: 81 Year
  Sex: Female

DRUGS (6)
  1. LASIX [Suspect]
     Route: 048
  2. COZAAR [Suspect]
     Route: 048
  3. DISCOTRINE [Suspect]
     Route: 062
  4. ELISOR [Suspect]
     Route: 048
  5. CEFAMANDOLE [Suspect]
     Route: 042
     Dates: start: 20070502, end: 20070503
  6. PREVISCAN                          /00789001/ [Suspect]
     Route: 048

REACTIONS (4)
  - HAEMATOMA [None]
  - INTERNATIONAL NORMALISED RATIO INCREASED [None]
  - MELAENA [None]
  - SHOCK HAEMORRHAGIC [None]
